FAERS Safety Report 23048721 (Version 15)
Quarter: 2025Q4

REPORT INFORMATION
  Report Type: Report from Study
  Country: BR (occurrence: BR)
  Receive Date: 20231010
  Receipt Date: 20251208
  Transmission Date: 20260118
  Serious: Yes (Hospitalization, Other)
  Sender: NOVARTIS
  Company Number: BR-002147023-NVSC2023BR188843

PATIENT
  Sex: Female

DRUGS (4)
  1. KISQALI [Suspect]
     Active Substance: RIBOCICLIB SUCCINATE
     Indication: Breast cancer
     Dosage: 3 DOSAGE FORM, QD
     Route: 065
     Dates: end: 20240314
  2. KISQALI [Suspect]
     Active Substance: RIBOCICLIB SUCCINATE
     Indication: Breast cancer metastatic
     Dosage: 3 DOSAGE FORM, QD
     Route: 065
  3. FASLODEX [Suspect]
     Active Substance: FULVESTRANT
     Indication: Breast cancer metastatic
     Dosage: 2 INJECTIONS OF FASLODEX EVERY MONTH (STRENGTH: 250 MG) (INJECTION)
     Route: 065
  4. FASLODEX [Suspect]
     Active Substance: FULVESTRANT
     Indication: Breast cancer

REACTIONS (50)
  - Malaise [Unknown]
  - Diabetes mellitus [Unknown]
  - Metastases to breast [Unknown]
  - Asphyxia [Unknown]
  - Skin cancer [Unknown]
  - Dysgeusia [Unknown]
  - Constipation [Recovered/Resolved]
  - Dizziness [Recovered/Resolved]
  - Hypertension [Unknown]
  - Dysarthria [Unknown]
  - Pain [Unknown]
  - Hypogeusia [Not Recovered/Not Resolved]
  - Scar [Unknown]
  - Sluggishness [Not Recovered/Not Resolved]
  - Gait inability [Unknown]
  - Abdominal mass [Unknown]
  - Aphasia [Recovered/Resolved]
  - Hypophagia [Unknown]
  - Rash macular [Not Recovered/Not Resolved]
  - Memory impairment [Unknown]
  - Malaise [Recovered/Resolved]
  - Influenza [Recovered/Resolved]
  - Cough [Recovered/Resolved]
  - Blood glucose decreased [Unknown]
  - Food aversion [Unknown]
  - Constipation [Unknown]
  - Arthralgia [Unknown]
  - Pain in extremity [Unknown]
  - Sleep disorder [Unknown]
  - Retching [Unknown]
  - Scab [Not Recovered/Not Resolved]
  - Wound secretion [Not Recovered/Not Resolved]
  - Asthenia [Unknown]
  - Drug ineffective [Unknown]
  - Wound [Not Recovered/Not Resolved]
  - Impaired healing [Unknown]
  - Feeling abnormal [Unknown]
  - Hair injury [Unknown]
  - Depressed mood [Unknown]
  - Nausea [Unknown]
  - Fatigue [Unknown]
  - Dry skin [Unknown]
  - Emotional distress [Unknown]
  - Pruritus [Not Recovered/Not Resolved]
  - Skin mass [Not Recovered/Not Resolved]
  - Blister [Recovering/Resolving]
  - Pigmentation disorder [Unknown]
  - Skin discolouration [Unknown]
  - Skin lesion [Unknown]
  - Purulent discharge [Unknown]

NARRATIVE: CASE EVENT DATE: 20250101
